FAERS Safety Report 7477575-1 (Version None)
Quarter: 2011Q2

REPORT INFORMATION
  Report Type: 
  Country: None (occurrence: None)
  Receive Date: 20110513
  Receipt Date: 20110505
  Transmission Date: 20111010
  Serious: Yes (Death, Disabling, Other)
  Sender: FDA-Public Use
  Company Number: US-JNJFOC-20110305870

PATIENT
  Age: 49 Year
  Sex: Female
  Weight: 50.8 kg

DRUGS (16)
  1. DILAUDID [Suspect]
     Indication: PRODUCT USED FOR UNKNOWN INDICATION
     Route: 042
  2. NORCO [Suspect]
     Indication: PRODUCT USED FOR UNKNOWN INDICATION
     Route: 065
  3. DILAUDID [Suspect]
     Route: 042
  4. REGLAN [Suspect]
     Indication: PRODUCT USED FOR UNKNOWN INDICATION
     Route: 065
  5. LACTULOSE [Suspect]
     Indication: PRODUCT USED FOR UNKNOWN INDICATION
     Route: 048
  6. ZOSYN [Suspect]
     Indication: PRODUCT USED FOR UNKNOWN INDICATION
     Route: 065
  7. COMPAZINE [Suspect]
     Indication: PRODUCT USED FOR UNKNOWN INDICATION
     Route: 065
  8. UNKNOWN MEDICATION [Suspect]
     Indication: PRODUCT USED FOR UNKNOWN INDICATION
     Route: 065
  9. LEVAQUIN [Suspect]
     Indication: PRODUCT USED FOR UNKNOWN INDICATION
     Route: 065
  10. LIDODERM [Suspect]
     Indication: PRODUCT USED FOR UNKNOWN INDICATION
     Route: 062
  11. XYLOCAINE [Suspect]
     Indication: PRODUCT USED FOR UNKNOWN INDICATION
     Route: 065
  12. ATROPINE [Suspect]
     Indication: PRODUCT USED FOR UNKNOWN INDICATION
     Route: 047
  13. MORPHINE [Suspect]
     Indication: PRODUCT USED FOR UNKNOWN INDICATION
     Route: 065
  14. OXYQUINOLINE SULFATE [Suspect]
     Indication: PRODUCT USED FOR UNKNOWN INDICATION
     Route: 065
  15. POLYVINYL ALCOHOL [Suspect]
     Indication: PRODUCT USED FOR UNKNOWN INDICATION
     Route: 065
  16. TPN [Suspect]
     Indication: PRODUCT USED FOR UNKNOWN INDICATION
     Route: 065

REACTIONS (23)
  - DEATH [None]
  - OEDEMA PERIPHERAL [None]
  - SPINAL CORD DISORDER [None]
  - GRIEF REACTION [None]
  - CONTUSION [None]
  - ADVERSE DRUG REACTION [None]
  - TOXICITY TO VARIOUS AGENTS [None]
  - PULMONARY EMBOLISM [None]
  - URINARY TRACT INFECTION [None]
  - BACK PAIN [None]
  - VIRAL INFECTION [None]
  - WEIGHT DECREASED [None]
  - PNEUMONIA [None]
  - ABDOMINAL DISTENSION [None]
  - HYPERSENSITIVITY [None]
  - OEDEMA [None]
  - DECREASED APPETITE [None]
  - PULMONARY MASS [None]
  - VAGINAL HAEMORRHAGE [None]
  - JAUNDICE [None]
  - BEDRIDDEN [None]
  - MUSCULAR WEAKNESS [None]
  - DRUG HYPERSENSITIVITY [None]
